FAERS Safety Report 8496443-X (Version None)
Quarter: 2012Q3

REPORT INFORMATION
  Report Type: 
  Country: None (occurrence: None)
  Receive Date: 20120709
  Receipt Date: 20120625
  Transmission Date: 20120928
  Serious: Yes (Other)
  Sender: FDA-Public Use
  Company Number: DE-MYLANLABS-2012S1013617

PATIENT
  Age: 28 Year
  Sex: Female
  Weight: 80 kg

DRUGS (9)
  1. PREDNISONE [Concomitant]
     Indication: IDIOPATHIC THROMBOCYTOPENIC PURPURA
     Route: 040
     Dates: start: 20091112, end: 20091116
  2. PROTAPHANE [Concomitant]
     Indication: GESTATIONAL DIABETES
     Route: 058
     Dates: start: 20100217, end: 20100316
  3. RITUXIMAB [Suspect]
     Indication: IDIOPATHIC THROMBOCYTOPENIC PURPURA
     Route: 042
     Dates: start: 20100124, end: 20100215
  4. OMEPRAZOLE [Suspect]
     Indication: GASTRITIS PROPHYLAXIS
     Route: 048
  5. FOLIC ACID [Concomitant]
     Indication: PRODUCT USED FOR UNKNOWN INDICATION
     Route: 048
  6. RITUXIMAB [Suspect]
  7. IMMUNE GLOBULIN (HUMAN) [Suspect]
     Indication: IDIOPATHIC THROMBOCYTOPENIC PURPURA
     Route: 042
     Dates: start: 20100312, end: 20100314
  8. PREDNISONE TAB [Concomitant]
     Indication: IDIOPATHIC THROMBOCYTOPENIC PURPURA
     Route: 048
     Dates: start: 20091215, end: 20100316
  9. DEXAMETHASONE [Concomitant]
     Indication: IDIOPATHIC THROMBOCYTOPENIC PURPURA
     Route: 040
     Dates: start: 20100312, end: 20100314

REACTIONS (3)
  - MATERNAL EXPOSURE DURING PREGNANCY [None]
  - THROMBOCYTOPENIA [None]
  - GESTATIONAL DIABETES [None]
